FAERS Safety Report 6187692-4 (Version None)
Quarter: 2009Q2

REPORT INFORMATION
  Report Type: 
  Country: None (occurrence: None)
  Receive Date: 20090511
  Receipt Date: 20090428
  Transmission Date: 20091009
  Serious: Yes (Hospitalization, Other)
  Sender: FDA-Public Use
  Company Number: ADE2009-0597

PATIENT
  Age: 57 Year
  Sex: Male

DRUGS (6)
  1. CITALOPRAM HYDROBROMIDE [Suspect]
     Indication: BIPOLAR DISORDER
  2. CARBAMAZEPINE [Suspect]
     Indication: BIPOLAR DISORDER
  3. LITHIUM [Suspect]
     Indication: BIPOLAR DISORDER
  4. VALPROIC ACID [Suspect]
  5. LITHIUM [Suspect]
     Dosage: 1500MG - DAILY
  6. TESTOSTERONE [Concomitant]

REACTIONS (18)
  - APATHY [None]
  - BLOOD GLUCOSE INCREASED [None]
  - BODY MASS INDEX INCREASED [None]
  - CYTOGENETIC ABNORMALITY [None]
  - DISTURBANCE IN ATTENTION [None]
  - ERECTILE DYSFUNCTION [None]
  - FATIGUE [None]
  - HYPOGONADISM [None]
  - IMPAIRED WORK ABILITY [None]
  - INSULIN-REQUIRING TYPE 2 DIABETES MELLITUS [None]
  - IRRITABILITY [None]
  - LOSS OF LIBIDO [None]
  - MENTALLY LATE DEVELOPER [None]
  - NEUROPATHY PERIPHERAL [None]
  - NO THERAPEUTIC RESPONSE [None]
  - OBESITY [None]
  - PERSONALITY CHANGE [None]
  - SELF ESTEEM DECREASED [None]
